FAERS Safety Report 10723359 (Version 2)
Quarter: 2015Q2

REPORT INFORMATION
  Report Type: Spontaneous
  Country: IT (occurrence: IT)
  Receive Date: 20150120
  Receipt Date: 20150428
  Transmission Date: 20150821
  Serious: Yes (Hospitalization)
  Sender: FDA-Public Use
  Company Number: IT-TEVA-533840ISR

PATIENT
  Age: 76 Year
  Sex: Male

DRUGS (4)
  1. ZOFRAN [Concomitant]
     Active Substance: ONDANSETRON HYDROCHLORIDE
  2. CARBOPLATINO TEVA [Suspect]
     Active Substance: CARBOPLATIN
     Indication: MESOTHELIOMA
     Route: 041
     Dates: start: 20150108, end: 20150108
  3. SOLDESAM [Concomitant]
     Active Substance: DEXAMETHASONE
  4. RANIDIL 150 MG [Concomitant]
     Route: 048

REACTIONS (3)
  - Flushing [Recovered/Resolved]
  - Laryngeal discomfort [Recovered/Resolved]
  - Abdominal pain upper [Recovered/Resolved]

NARRATIVE: CASE EVENT DATE: 20150108
